FAERS Safety Report 5769758-3 (Version None)
Quarter: 2008Q2

REPORT INFORMATION
  Report Type: 
  Country: None (occurrence: None)
  Receive Date: 20080612
  Receipt Date: 20080408
  Transmission Date: 20081010
  Serious: No
  Sender: FDA-Public Use
  Company Number: US-ABBOTT-08P-163-0446471-00

PATIENT
  Sex: Female
  Weight: 79.904 kg

DRUGS (6)
  1. HUMIRA [Suspect]
     Indication: CROHN'S DISEASE
     Route: 058
     Dates: start: 20080218, end: 20080218
  2. HUMIRA [Suspect]
     Route: 058
  3. HUMIRA [Suspect]
     Route: 058
  4. MULTI-VITAMIN [Concomitant]
     Indication: VITAMIN SUPPLEMENTATION
     Route: 048
  5. BIRTH CONTROL PILL [Concomitant]
     Indication: PROPHYLAXIS
     Route: 048
  6. BIRTH CONTROL PILL [Concomitant]
     Indication: PREGNANCY

REACTIONS (3)
  - INJECTION SITE REACTION [None]
  - INJECTION SITE SWELLING [None]
  - URTICARIA [None]
